FAERS Safety Report 5491631-9 (Version None)
Quarter: 2007Q4

REPORT INFORMATION
  Report Type: 
  Country: None (occurrence: None)
  Receive Date: 20071018
  Receipt Date: 20071018
  Transmission Date: 20080405
  Serious: Yes (Death)
  Sender: FDA-Public Use
  Company Number: None

PATIENT
  Age: 24 Year
  Sex: Female
  Weight: 55 kg

DRUGS (7)
  1. RITUXIMAB [Suspect]
     Indication: NEUROMYELITIS OPTICA
     Dosage: 615 MG  X 1   IV
     Route: 042
     Dates: start: 20070906, end: 20070906
  2. RITUXIMAB [Suspect]
  3. BACLOFEN [Concomitant]
  4. GABAPENTIN [Concomitant]
  5. LORAZEPAM [Concomitant]
  6. ACETAMINOPHEN [Concomitant]
  7. DIPHENHYDRAMINE HCL [Concomitant]

REACTIONS (1)
  - DYSPNOEA [None]
